FAERS Safety Report 6229294-7 (Version None)
Quarter: 2009Q2

REPORT INFORMATION
  Report Type: 
  Country: None (occurrence: None)
  Receive Date: 20090615
  Receipt Date: 20090522
  Transmission Date: 20091009
  Serious: No
  Sender: FDA-Public Use
  Company Number: US-JNJFOC-20090505909

PATIENT
  Sex: Male
  Weight: 108.86 kg

DRUGS (6)
  1. INVEGA [Suspect]
     Route: 048
  2. INVEGA [Suspect]
     Dosage: 9 MG TABLET + 3 MG TABLET
     Route: 048
  3. INVEGA [Suspect]
     Indication: SCHIZOAFFECTIVE DISORDER
     Route: 048
  4. ZOLOFT [Concomitant]
     Indication: BIPOLAR DISORDER
     Route: 048
  5. KLONOPIN [Concomitant]
     Indication: SLEEP DISORDER THERAPY
     Route: 048
  6. LIPITOR [Concomitant]
     Indication: BLOOD CHOLESTEROL
     Route: 048

REACTIONS (1)
  - EXTRAPYRAMIDAL DISORDER [None]
